FAERS Safety Report 8947145 (Version 1)
Quarter: 2012Q4

REPORT INFORMATION
  Report Type: Report from Study
  Country: BR (occurrence: BR)
  Receive Date: 20121205
  Receipt Date: 20121205
  Transmission Date: 20130627
  Serious: Yes (Other)
  Sender: FDA-Public Use
  Company Number: BR-ROCHE-1164320

PATIENT
  Sex: Male
  Weight: 48.5 kg

DRUGS (3)
  1. PEG-INTERFERON ALFA 2A [Suspect]
     Indication: HEPATITIS C
     Route: 065
     Dates: start: 20120827
  2. RIBAVIRIN [Suspect]
     Indication: HEPATITIS C
     Route: 065
     Dates: start: 20120827
  3. PANTOPRAZOLE [Concomitant]
     Indication: LIVER DISORDER
     Route: 065

REACTIONS (1)
  - White blood cell count decreased [Unknown]
